FAERS Safety Report 12241164 (Version 1)
Quarter: 2016Q2

REPORT INFORMATION
  Report Type: Spontaneous
  Country: US (occurrence: None)
  Receive Date: 20160405
  Receipt Date: 20160405
  Transmission Date: 20160815
  Serious: No
  Sender: FDA-Public Use
  Company Number: None

PATIENT
  Age: 59 Year
  Sex: Female
  Weight: 58.15 kg

DRUGS (3)
  1. FLUNISOLIDE 29MCG [Suspect]
     Active Substance: FLUNISOLIDE
     Dosage: 2 SPEN
     Route: 045
     Dates: start: 20160223, end: 20160323
  2. FLUTICASONE 50MCG [Suspect]
     Active Substance: FLUTICASONE\FLUTICASONE PROPIONATE
  3. BUDESONIDE 32MCG [Suspect]
     Active Substance: BUDESONIDE
     Dosage: 1-2 SPEN
     Route: 045
     Dates: start: 20160217, end: 20160317

REACTIONS (2)
  - Oropharyngeal pain [None]
  - Nasal discomfort [None]

NARRATIVE: CASE EVENT DATE: 20160303
